FAERS Safety Report 20629539 (Version 3)
Quarter: 2022Q2

REPORT INFORMATION
  Report Type: Spontaneous
  Country: US (occurrence: US)
  Receive Date: 20220323
  Receipt Date: 20220509
  Transmission Date: 20220721
  Serious: No
  Sender: FDA-Public Use
  Company Number: US-PFIZER INC-202200439804

PATIENT
  Age: 50 Year
  Sex: Female
  Weight: 104.33 kg

DRUGS (5)
  1. AROMASIN [Interacting]
     Active Substance: EXEMESTANE
     Indication: Breast cancer
     Dosage: 25 MG, 1X/DAY
     Route: 048
     Dates: start: 202111
  2. AROMASIN [Interacting]
     Active Substance: EXEMESTANE
     Dosage: 50 MG
  3. PRIMIDONE [Interacting]
     Active Substance: PRIMIDONE
     Indication: Essential tremor
     Dosage: 0.5 DF, 1X/DAY (REDUCED TO HALF TABLET)
     Route: 048
     Dates: start: 202111
  4. OXYMETAZOLINE HYDROCHLORIDE [Concomitant]
     Active Substance: OXYMETAZOLINE HYDROCHLORIDE
     Indication: Allergy to animal
     Dosage: 10 MG, 1X/DAY
     Dates: start: 2011
  5. CALTRATE WITH VITAMIN D [Concomitant]
     Active Substance: CALCIUM CARBONATE\CHOLECALCIFEROL
     Indication: Osteoporosis
     Dosage: UNK, DAILY(2 TABLETS DAILY)
     Dates: start: 202103

REACTIONS (5)
  - Neoplasm progression [Unknown]
  - Tremor [Not Recovered/Not Resolved]
  - Drug interaction [Unknown]
  - Somnolence [Recovered/Resolved]
  - Nausea [Unknown]

NARRATIVE: CASE EVENT DATE: 20210301
